FAERS Safety Report 10932683 (Version 1)
Quarter: 2015Q1

REPORT INFORMATION
  Report Type: Spontaneous
  Country: US (occurrence: None)
  Receive Date: 20150318
  Receipt Date: 20150318
  Transmission Date: 20150721
  Serious: No
  Sender: FDA-Public Use
  Company Number: 1210513-2015-00089

PATIENT
  Sex: Male

DRUGS (1)
  1. DR. SHEFFIELD ANTI ITCH CREAM [Suspect]
     Active Substance: DIPHENHYDRAMINE HYDROCHLORIDE\ZINC ACETATE
     Indication: ANTIALLERGIC THERAPY
     Route: 061

REACTIONS (1)
  - Urticaria [None]

NARRATIVE: CASE EVENT DATE: 20110331
